FAERS Safety Report 6334828-8 (Version None)
Quarter: 2009Q3

REPORT INFORMATION
  Report Type: 
  Country: None (occurrence: None)
  Receive Date: 20090831
  Receipt Date: 20090814
  Transmission Date: 20100115
  Serious: Yes (Hospitalization, Other)
  Sender: FDA-Public Use
  Company Number: FR-BAYER-200928812GPV

PATIENT
  Age: 70 Year
  Sex: Male
  Weight: 85 kg

DRUGS (6)
  1. CIFLOX [Suspect]
     Indication: DRUG USE FOR UNKNOWN INDICATION
     Route: 048
     Dates: start: 20090629, end: 20090706
  2. TORISEL [Suspect]
     Indication: DRUG USE FOR UNKNOWN INDICATION
     Dosage: 3.5714 MG; 6 SESSIONS PERFORMED UNTIL 16-JUN-2009
     Route: 042
     Dates: start: 20090512, end: 20090707
  3. KETEK [Suspect]
     Indication: DRUG USE FOR UNKNOWN INDICATION
     Route: 048
     Dates: start: 20090707, end: 20090715
  4. AUGMENTIN [Concomitant]
     Indication: LUNG DISORDER
     Route: 065
     Dates: start: 20090623, end: 20090628
  5. SUTENT [Concomitant]
     Indication: DRUG USE FOR UNKNOWN INDICATION
     Dates: start: 20090101
  6. ASPEGIC 1000 [Concomitant]
     Indication: PLATELET AGGREGATION INHIBITION

REACTIONS (8)
  - COUGH [None]
  - DRUG HYPERSENSITIVITY [None]
  - ERYTHEMA [None]
  - NEUTROPENIA [None]
  - PYREXIA [None]
  - THROMBOCYTOPENIA [None]
  - THROMBOCYTOPENIC PURPURA [None]
  - TOXIC SKIN ERUPTION [None]
